FAERS Safety Report 19496548 (Version 1)
Quarter: 2021Q3

REPORT INFORMATION
  Report Type: Spontaneous
  Country: US (occurrence: US)
  Receive Date: 20210701
  Receipt Date: 20210701
  Transmission Date: 20211014
  Serious: No
  Sender: FDA-Public Use
  Company Number: None

PATIENT
  Age: 67 Year
  Sex: Male

DRUGS (1)
  1. RITUXAN [Suspect]
     Active Substance: RITUXIMAB
     Indication: RHEUMATOID ARTHRITIS
     Dosage: INFUSE 1000MG INTRAVENOUSLY AT WEEK 0 AND  WEEK 2, THEN EVERY 6 MONTHS  THEREAFTER.??? HOLD
     Route: 042
     Dates: start: 202010

REACTIONS (1)
  - Skin cancer [None]
